FAERS Safety Report 7340486-6 (Version None)
Quarter: 2011Q1

REPORT INFORMATION
  Report Type: 
  Country: None (occurrence: None)
  Receive Date: 20110309
  Receipt Date: 20110308
  Transmission Date: 20110831
  Serious: Yes (Other)
  Sender: FDA-Public Use
  Company Number: AU-PFIZER INC-2011050765

PATIENT
  Age: 65 Year
  Sex: Female

DRUGS (1)
  1. CHAMPIX [Suspect]
     Dosage: UNK
     Dates: start: 20110221

REACTIONS (8)
  - ASTHENIA [None]
  - MALAISE [None]
  - NAUSEA [None]
  - FLAT AFFECT [None]
  - FATIGUE [None]
  - AGGRESSION [None]
  - VOMITING [None]
  - HYPERSOMNIA [None]
